FAERS Safety Report 9476707 (Version 1)
Quarter: 2013Q3

REPORT INFORMATION
  Report Type: Spontaneous
  Country: US (occurrence: US)
  Receive Date: 20130826
  Receipt Date: 20130826
  Transmission Date: 20140515
  Serious: Yes (Other)
  Sender: FDA-Public Use
  Company Number: US-BAYER-2013-100281

PATIENT
  Sex: 0

DRUGS (1)
  1. ALEVE CAPLET [Suspect]
     Indication: HEADACHE

REACTIONS (6)
  - Visual field defect [None]
  - Hypersensitivity [None]
  - Eye swelling [None]
  - Somnolence [None]
  - Palpitations [None]
  - Chills [None]
